FAERS Safety Report 6072329-5 (Version None)
Quarter: 2009Q1

REPORT INFORMATION
  Report Type: 
  Country: None (occurrence: None)
  Receive Date: 20090210
  Receipt Date: 20090209
  Transmission Date: 20090719
  Serious: Yes (Other)
  Sender: FDA-Public Use
  Company Number: PHHO2007PE09558

PATIENT
  Sex: Male
  Weight: 92 kg

DRUGS (5)
  1. DIOVAN T30230+ [Suspect]
     Indication: HYPERTENSION
     Dosage: DOUBLE BLIND
     Route: 048
     Dates: start: 20070329, end: 20070530
  2. DIOVAN T30230+ [Suspect]
     Dosage: NO TREATMENT
     Dates: start: 20070531
  3. AMLODIPINE [Suspect]
  4. AMLODIPINE [Concomitant]
  5. ENALAPRIL [Concomitant]

REACTIONS (3)
  - BLOOD CREATINE PHOSPHOKINASE INCREASED [None]
  - HEPATIC STEATOSIS [None]
  - MYALGIA [None]
